FAERS Safety Report 25084121 (Version 1)
Quarter: 2025Q1

REPORT INFORMATION
  Report Type: Spontaneous
  Country: GB (occurrence: GB)
  Receive Date: 20250317
  Receipt Date: 20250317
  Transmission Date: 20250409
  Serious: Yes (Death)
  Sender: ACCORD
  Company Number: GB-MLMSERVICE-20250228-PI434318-00295-2

PATIENT
  Age: 45 Year
  Sex: Male

DRUGS (5)
  1. SERTRALINE [Suspect]
     Active Substance: SERTRALINE HYDROCHLORIDE
     Indication: Anxiety
     Dates: start: 2024, end: 2024
  2. CITALOPRAM [Suspect]
     Active Substance: CITALOPRAM
     Indication: Anxiety
     Dates: start: 2024, end: 2024
  3. ZOPICLONE [Concomitant]
     Active Substance: ZOPICLONE
     Indication: Poor quality sleep
     Dates: start: 2024, end: 2024
  4. CITALOPRAM [Suspect]
     Active Substance: CITALOPRAM
     Indication: Stress at work
     Dates: start: 2024, end: 2024
  5. SERTRALINE [Suspect]
     Active Substance: SERTRALINE HYDROCHLORIDE
     Indication: Stress at work
     Dates: start: 2024, end: 2024

REACTIONS (3)
  - Completed suicide [Fatal]
  - Gun shot wound [Fatal]
  - Off label use [Unknown]

NARRATIVE: CASE EVENT DATE: 20240101
